FAERS Safety Report 7580491 (Version 2)
Quarter: 2013Q2

REPORT INFORMATION
  Report Type: Spontaneous
  Country: GB (occurrence: None)
  Receive Date: 20100831
  Receipt Date: 20130502
  Transmission Date: 20140414
  Serious: Yes (Disabling, Other)
  Sender: FDA-Public Use
  Company Number: 677397

PATIENT
  Age: 45 Year
  Sex: Female

DRUGS (5)
  1. PAMIDRONIC ACID [Suspect]
     Indication: BONE PAIN
     Dosage: INTRAVENOUS (NOT OTHERWISE SPECIFIED)
     Route: 042
  2. PAMIDRONIC ACID [Suspect]
     Indication: METASTATIC PAIN
     Dosage: INTRAVENOUS (NOT OTHERWISE SPECIFIED)
     Route: 042
  3. (GOSERELIN) [Concomitant]
  4. EXEMESTANE [Concomitant]
  5. (NSAID^S) [Concomitant]

REACTIONS (4)
  - BENIGN INTRACRANIAL HYPERTENSION [None]
  - OPTIC NEURITIS [None]
  - OPTIC DISC HAEMORRHAGE [None]
  - OCULAR HYPERAEMIA [None]
